FAERS Safety Report 6348748 (Version 2)
Quarter: 2019Q4

REPORT INFORMATION
  Report Type: Spontaneous
  Country: US (occurrence: US)
  Receive Date: 20070703
  Receipt Date: 20191018
  Transmission Date: 20200122
  Serious: Yes (Death, Other)
  Sender: FDA-Public Use
  Company Number: US-PFIZER INC-2007052064

PATIENT
  Age: 86 Year
  Sex: Female

DRUGS (2)
  1. GEODON [Suspect]
     Active Substance: ZIPRASIDONE HYDROCHLORIDE\ZIPRASIDONE MESYLATE
     Indication: PSYCHOTIC DISORDER
  2. GEODON [Suspect]
     Active Substance: ZIPRASIDONE HYDROCHLORIDE\ZIPRASIDONE MESYLATE
     Indication: DEMENTIA
     Dosage: 80 MG, UNK

REACTIONS (5)
  - Parkinsonian rest tremor [Unknown]
  - Tremor [Unknown]
  - Tardive dyskinesia [Unknown]
  - Myocardial infarction [Fatal]
  - Dystonia [Unknown]
